FAERS Safety Report 19264416 (Version 1)
Quarter: 2021Q2

REPORT INFORMATION
  Report Type: Spontaneous
  Country: US (occurrence: US)
  Receive Date: 20210517
  Receipt Date: 20210517
  Transmission Date: 20210717
  Serious: Yes (Hospitalization)
  Sender: FDA-Public Use
  Company Number: None

PATIENT
  Age: 38 Year
  Sex: Female
  Weight: 78.3 kg

DRUGS (11)
  1. CAPECITABINE. [Suspect]
     Active Substance: CAPECITABINE
     Indication: BREAST CANCER FEMALE
     Dosage: ?          OTHER FREQUENCY:QPM X14 DAYS, 7OFF;?
     Route: 048
     Dates: start: 20210430, end: 20210514
  2. FERROUS SULFATE 325MG [Concomitant]
     Active Substance: FERROUS SULFATE
  3. ALENDRONATE SODIUM 70MG [Concomitant]
     Active Substance: ALENDRONATE SODIUM
  4. SPIRONOLACTONE 25MG [Concomitant]
     Active Substance: SPIRONOLACTONE
  5. SERTRALINE 50MG [Concomitant]
     Active Substance: SERTRALINE HYDROCHLORIDE
  6. CAPECITABINE. [Suspect]
     Active Substance: CAPECITABINE
     Indication: BREAST CANCER FEMALE
     Dosage: ?          OTHER FREQUENCY:QAM X14DAYS, 7OFF;?
     Route: 048
     Dates: start: 20210430, end: 20210514
  7. NORCO [Concomitant]
     Active Substance: ACETAMINOPHEN\HYDROCODONE BITARTRATE
  8. CLONIDINE 0.2MG/24HR PATCH [Concomitant]
  9. METOPROLOL TARTRATE 100MG [Concomitant]
     Active Substance: METOPROLOL TARTRATE
  10. HYDRALAZINE 25MG [Concomitant]
     Active Substance: HYDRALAZINE HYDROCHLORIDE
  11. POTASSIUM CHLORIDE 10MEQ [Concomitant]
     Active Substance: POTASSIUM CHLORIDE

REACTIONS (1)
  - Hospice care [None]

NARRATIVE: CASE EVENT DATE: 20210514
